FAERS Safety Report 13747026 (Version 2)
Quarter: 2017Q3

REPORT INFORMATION
  Report Type: Report from Study
  Country: JP (occurrence: JP)
  Receive Date: 20170712
  Receipt Date: 20170927
  Transmission Date: 20171127
  Serious: Yes (Other)
  Sender: FDA-Public Use
  Company Number: JP-GILEAD-2017-0281967

PATIENT
  Age: 39 Year
  Sex: Male

DRUGS (4)
  1. JANUVIA [Concomitant]
     Active Substance: SITAGLIPTIN PHOSPHATE
     Indication: DIABETES MELLITUS
     Dosage: DOSAGE FORM: UNSPECIFIED
     Route: 048
     Dates: start: 20160401
  2. DARUNAVIR ETHANOLATE. [Concomitant]
     Active Substance: DARUNAVIR ETHANOLATE
     Indication: HIV INFECTION
     Route: 048
     Dates: start: 20100301, end: 20130707
  3. RILPIVIRINE HYDROCHLORIDE [Suspect]
     Active Substance: RILPIVIRINE HYDROCHLORIDE
     Indication: HIV INFECTION
     Dosage: 1 DF, QD
     Route: 048
     Dates: start: 20130708, end: 20150906
  4. EMTRICITABINE/TENOFOVIR DISOPROXIL FUMARATE [Suspect]
     Active Substance: EMTRICITABINE\TENOFOVIR DISOPROXIL FUMARATE
     Indication: HIV INFECTION
     Dosage: 1 DF, QD
     Route: 048
     Dates: start: 20081029, end: 20150906

REACTIONS (3)
  - Dyslipidaemia [Not Recovered/Not Resolved]
  - Liver disorder [Not Recovered/Not Resolved]
  - Diabetic nephropathy [Not Recovered/Not Resolved]
